FAERS Safety Report 4898197-2 (Version None)
Quarter: 2006Q1

REPORT INFORMATION
  Report Type: 
  Country: None (occurrence: None)
  Receive Date: 20060201
  Receipt Date: 20060125
  Transmission Date: 20060701
  Serious: Yes (Hospitalization)
  Sender: FDA-Public Use
  Company Number: US-MERCK-0601USA03031

PATIENT
  Age: 53 Year
  Sex: Female
  Weight: 110 kg

DRUGS (12)
  1. VIOXX [Suspect]
     Indication: PAIN IN EXTREMITY
     Route: 048
     Dates: start: 20040310, end: 20041001
  2. VIOXX [Suspect]
     Route: 048
     Dates: start: 20040310, end: 20041001
  3. PREVACID [Concomitant]
     Route: 065
  4. METFORMIN HYDROCHLORIDE [Concomitant]
     Route: 065
  5. GLUCOTROL XL [Concomitant]
     Route: 065
  6. LEVOXYL [Concomitant]
     Route: 065
  7. MONOPRIL [Concomitant]
     Route: 065
  8. ACTOS [Concomitant]
     Route: 065
  9. ZOCOR [Concomitant]
     Route: 065
  10. GLUCOPHAGE [Concomitant]
     Route: 065
  11. CLOTRIMAZOLE [Concomitant]
     Route: 065
  12. COZAAR [Concomitant]
     Route: 065

REACTIONS (3)
  - ACTIVATED PARTIAL THROMBOPLASTIN TIME PROLONGED [None]
  - BLOOD GLUCOSE INCREASED [None]
  - CEREBROVASCULAR ACCIDENT [None]
